FAERS Safety Report 20316986 (Version 1)
Quarter: 2022Q1

REPORT INFORMATION
  Report Type: Spontaneous
  Country: US (occurrence: US)
  Receive Date: 20220110
  Receipt Date: 20220110
  Transmission Date: 20220423
  Serious: Yes (Hospitalization, Other)
  Sender: FDA-Public Use
  Company Number: US-SA-SAC20220104001170

PATIENT
  Age: 56 Year
  Sex: Male

DRUGS (1)
  1. CAPRELSA [Suspect]
     Active Substance: VANDETANIB
     Indication: Lung neoplasm malignant
     Dosage: 300 MG, QD
     Route: 048
     Dates: start: 20200707

REACTIONS (2)
  - Pneumonia [Unknown]
  - Pyrexia [Unknown]
